FAERS Safety Report 4570406-9 (Version None)
Quarter: 2005Q1

REPORT INFORMATION
  Report Type: 
  Country: None (occurrence: None)
  Receive Date: 20050204
  Receipt Date: 20050125
  Transmission Date: 20050727
  Serious: Yes (Hospitalization)
  Sender: FDA-Public Use
  Company Number: JP-MERCK-0501USA04259

PATIENT
  Age: 45 Year
  Sex: Female

DRUGS (3)
  1. PEPCID [Suspect]
     Indication: GASTRIC ULCER
     Route: 048
     Dates: start: 20040728, end: 20040801
  2. OMEPRAL [Concomitant]
     Route: 048
     Dates: end: 20040728
  3. OMEPRAL [Concomitant]
     Route: 048
     Dates: start: 20040801

REACTIONS (1)
  - HEPATOCELLULAR DAMAGE [None]
